FAERS Safety Report 6813613-4 (Version None)
Quarter: 2010Q3

REPORT INFORMATION
  Report Type: 
  Country: None (occurrence: None)
  Receive Date: 20100701
  Receipt Date: 20100624
  Transmission Date: 20110219
  Serious: Yes (Death, Other)
  Sender: FDA-Public Use
  Company Number: BR-PFIZER INC-2010080119

PATIENT
  Age: 65 Year
  Sex: Female

DRUGS (1)
  1. SILDENAFIL CITRATE [Suspect]
     Indication: PULMONARY HYPERTENSION
     Dosage: 50 MG, UNSPECIFIED FREQUENCY
     Route: 048
     Dates: start: 20090101

REACTIONS (1)
  - PULMONARY HYPERTENSION [None]
